FAERS Safety Report 9068659 (Version 1)
Quarter: 2013Q1

REPORT INFORMATION
  Report Type: Spontaneous
  Country: US (occurrence: None)
  Receive Date: 20130212
  Receipt Date: 20130212
  Transmission Date: 20140127
  Serious: Yes (Other)
  Sender: FDA-Public Use
  Company Number: None

PATIENT
  Age: 43 Year
  Sex: Female
  Weight: 58.97 kg

DRUGS (1)
  1. TOPIRAMATE [Suspect]

REACTIONS (5)
  - Dyspnoea [None]
  - Paraesthesia [None]
  - Confusional state [None]
  - Sleep disorder [None]
  - Lethargy [None]
